FAERS Safety Report 16472354 (Version 4)
Quarter: 2023Q1

REPORT INFORMATION
  Report Type: Spontaneous
  Country: CN (occurrence: None)
  Receive Date: 20190625
  Receipt Date: 20230111
  Transmission Date: 20230418
  Serious: Yes (Other)
  Sender: FDA-Public Use
  Company Number: CN-ROCHE-2343055

PATIENT
  Age: 45 Year
  Sex: Male

DRUGS (29)
  1. AVASTIN [Suspect]
     Active Substance: BEVACIZUMAB
     Indication: Rectal cancer
     Route: 065
     Dates: start: 20151210, end: 20160111
  2. AVASTIN [Suspect]
     Active Substance: BEVACIZUMAB
     Dosage: FROM OCT 2017 TO JAN 2020
     Route: 065
     Dates: start: 201704, end: 201709
  3. AVASTIN [Suspect]
     Active Substance: BEVACIZUMAB
     Route: 065
     Dates: start: 201710
  4. XELODA [Suspect]
     Active Substance: CAPECITABINE
     Indication: Rectal cancer
     Route: 048
     Dates: start: 20130101, end: 20131204
  5. OXALIPLATIN [Concomitant]
     Active Substance: OXALIPLATIN
     Indication: Rectal cancer
     Dates: start: 20130101, end: 20131204
  6. OXALIPLATIN [Concomitant]
     Active Substance: OXALIPLATIN
     Dates: start: 201704, end: 201709
  7. OXALIPLATIN [Concomitant]
     Active Substance: OXALIPLATIN
     Dates: start: 20200317
  8. OXALIPLATIN [Concomitant]
     Active Substance: OXALIPLATIN
     Dosage: 4 CYCLES
     Dates: start: 202007, end: 202011
  9. IRINOTECAN [Concomitant]
     Active Substance: IRINOTECAN
     Indication: Rectal cancer
     Dates: start: 20151210
  10. IRINOTECAN [Concomitant]
     Active Substance: IRINOTECAN
     Dates: start: 201704, end: 201709
  11. IRINOTECAN [Concomitant]
     Active Substance: IRINOTECAN
     Dates: start: 20200317
  12. IRINOTECAN [Concomitant]
     Active Substance: IRINOTECAN
     Dosage: 4 CYCLES
     Dates: start: 202007, end: 202011
  13. IRINOTECAN [Concomitant]
     Active Substance: IRINOTECAN
     Dates: start: 202104, end: 202106
  14. LEUCOVORIN CALCIUM [Concomitant]
     Active Substance: LEUCOVORIN CALCIUM
     Indication: Rectal cancer
     Dates: start: 20151210
  15. LEUCOVORIN CALCIUM [Concomitant]
     Active Substance: LEUCOVORIN CALCIUM
     Dates: start: 201704, end: 201709
  16. LEUCOVORIN CALCIUM [Concomitant]
     Active Substance: LEUCOVORIN CALCIUM
     Dates: start: 20200317
  17. LEUCOVORIN CALCIUM [Concomitant]
     Active Substance: LEUCOVORIN CALCIUM
     Dates: start: 202007, end: 202011
  18. LEUCOVORIN CALCIUM [Concomitant]
     Active Substance: LEUCOVORIN CALCIUM
     Dates: start: 202104, end: 202106
  19. FLUOROURACIL [Concomitant]
     Active Substance: FLUOROURACIL
     Indication: Rectal cancer
     Dates: start: 20151210
  20. FLUOROURACIL [Concomitant]
     Active Substance: FLUOROURACIL
     Dates: start: 201704, end: 201709
  21. FLUOROURACIL [Concomitant]
     Active Substance: FLUOROURACIL
     Dates: start: 201710, end: 202001
  22. FLUOROURACIL [Concomitant]
     Active Substance: FLUOROURACIL
     Dates: start: 20200317
  23. FLUOROURACIL [Concomitant]
     Active Substance: FLUOROURACIL
     Dates: start: 202007, end: 202011
  24. FLUOROURACIL [Concomitant]
     Active Substance: FLUOROURACIL
     Dates: start: 202104, end: 202106
  25. CETUXIMAB [Concomitant]
     Active Substance: CETUXIMAB
     Indication: Rectal cancer
     Dosage: 4 CYCLES
     Dates: start: 202007, end: 202011
  26. FRUQUINTINIB [Concomitant]
     Active Substance: FRUQUINTINIB
     Indication: Rectal cancer
     Dates: start: 202011, end: 202104
  27. RALTITREXED [Concomitant]
     Active Substance: RALTITREXED
     Indication: Rectal cancer
     Dates: start: 202011, end: 202104
  28. REGORAFENIB [Concomitant]
     Active Substance: REGORAFENIB
     Indication: Rectal cancer
     Dates: start: 202106, end: 202207
  29. SINTILIMAB [Concomitant]
     Active Substance: SINTILIMAB
     Indication: Rectal cancer
     Dates: start: 202106, end: 202107

REACTIONS (1)
  - Liver injury [Unknown]
